FAERS Safety Report 8434938 (Version 2)
Quarter: 2012Q4

REPORT INFORMATION
  Report Type: 
  Country: JP (occurrence: JP)
  Receive Date: 20120301
  Receipt Date: 20120911
  Transmission Date: 20130627
  Serious: Yes (Life-Threatening)
  Sender: FDA-Public Use
  Company Number: JP-JNJFOC-20120211919

PATIENT
  Age: 79 Year
  Sex: Male
  Weight: 60 kg

DRUGS (4)
  1. FLORID [Suspect]
     Route: 049
  2. FLORID [Suspect]
     Indication: ORAL CANDIDIASIS
     Dosage: for 10 days
     Route: 049
     Dates: start: 20070719, end: 20070728
  3. WARFARIN POTASSIUM [Interacting]
     Indication: ATRIAL FIBRILLATION
     Route: 048
     Dates: start: 20040909
  4. ALLOPURINOL [Concomitant]
     Indication: HYPERURICAEMIA
     Route: 048
     Dates: start: 20040909

REACTIONS (3)
  - Retroperitoneal haemorrhage [Recovered/Resolved]
  - Drug interaction [Recovered/Resolved]
  - International normalised ratio increased [Recovered/Resolved]
